FAERS Safety Report 20999695 (Version 1)
Quarter: 2022Q2

REPORT INFORMATION
  Report Type: Spontaneous
  Country: US (occurrence: None)
  Receive Date: 20220623
  Receipt Date: 20220623
  Transmission Date: 20220720
  Serious: No
  Sender: FDA-Public Use
  Company Number: None

PATIENT
  Age: 38 Year
  Sex: Female
  Weight: 117.45 kg

DRUGS (7)
  1. PAXLOVID [Suspect]
     Active Substance: NIRMATRELVIR\RITONAVIR
     Indication: COVID-19
     Dosage: OTHER QUANTITY : 3 TABLET(S);?FREQUENCY : TWICE A DAY;?
     Route: 048
  2. Albuterol as needed [Concomitant]
  3. Singulair daily [Concomitant]
  4. Allegra daily [Concomitant]
  5. takes Errin birth control but told to discontinue until day 3 after en [Concomitant]
  6. EMERGEN-C [Concomitant]
     Active Substance: VITAMINS
  7. ALEVE [Concomitant]
     Active Substance: NAPROXEN SODIUM

REACTIONS (2)
  - Taste disorder [None]
  - Eating disorder [None]

NARRATIVE: CASE EVENT DATE: 20220622
